FAERS Safety Report 6311448-2 (Version None)
Quarter: 2009Q3

REPORT INFORMATION
  Report Type: 
  Country: None (occurrence: None)
  Receive Date: 20090804
  Receipt Date: 20090724
  Transmission Date: 20100115
  Serious: Yes (Death)
  Sender: FDA-Public Use
  Company Number: THYM-1001086

PATIENT
  Age: 62 Week
  Sex: Male

DRUGS (1)
  1. THYMOGLOBULIN [Suspect]
     Indication: PROPHYLAXIS AGAINST TRANSPLANT REJECTION
     Dosage: 16 MG/DAY, INTRAVENOUS
     Route: 042
     Dates: start: 20090301, end: 20090304

REACTIONS (7)
  - CARDIOVASCULAR DISORDER [None]
  - EPSTEIN-BARR VIRUS ASSOCIATED LYMPHOPROLIFERATIVE DISORDER [None]
  - INFECTION [None]
  - INTESTINAL HAEMORRHAGE [None]
  - INTESTINAL PERFORATION [None]
  - LYMPHOMA [None]
  - MULTI-ORGAN FAILURE [None]
